FAERS Safety Report 9885840 (Version 1)
Quarter: 2014Q1

REPORT INFORMATION
  Report Type: Spontaneous
  Country: US (occurrence: US)
  Receive Date: 20140210
  Receipt Date: 20140210
  Transmission Date: 20141002
  Serious: No
  Sender: FDA-Public Use
  Company Number: US-PFIZER INC-2014037271

PATIENT
  Age: 62 Year
  Sex: Male
  Weight: 111.11 kg

DRUGS (1)
  1. VIAGRA [Suspect]
     Dosage: 50 MG, UNK
     Route: 048

REACTIONS (3)
  - Drug dispensing error [Unknown]
  - Expired drug administered [Unknown]
  - Drug ineffective [Unknown]
